FAERS Safety Report 12472214 (Version 3)
Quarter: 2016Q2

REPORT INFORMATION
  Report Type: Spontaneous
  Country: US (occurrence: US)
  Receive Date: 20160616
  Receipt Date: 20160628
  Transmission Date: 20160815
  Serious: Yes (Other)
  Sender: FDA-Public Use
  Company Number: US-JNJFOC-20160607298

PATIENT

DRUGS (1)
  1. XARELTO [Suspect]
     Active Substance: RIVAROXABAN
     Indication: PRODUCT USED FOR UNKNOWN INDICATION
     Route: 048
     Dates: start: 201403, end: 201404

REACTIONS (6)
  - Haemorrhage intracranial [Unknown]
  - Rectal haemorrhage [Unknown]
  - Subdural haematoma [Unknown]
  - Cerebral haemorrhage [Unknown]
  - Pleural effusion [Unknown]
  - Haematoma [Unknown]

NARRATIVE: CASE EVENT DATE: 20140330
